FAERS Safety Report 5999786-4 (Version None)
Quarter: 2008Q4

REPORT INFORMATION
  Report Type: 
  Country: None (occurrence: None)
  Receive Date: 20081215
  Receipt Date: 20081211
  Transmission Date: 20090506
  Serious: Yes (Death, Hospitalization)
  Sender: FDA-Public Use
  Company Number: CH-ASTRAZENECA-2008PK02698

PATIENT
  Age: 56 Year
  Sex: Male

DRUGS (10)
  1. PROPOFOL [Suspect]
  2. TAZOBACTAM [Suspect]
     Indication: SEPSIS
     Route: 042
     Dates: start: 20080830
  3. DIFLUCAN [Suspect]
     Indication: ORAL CANDIDIASIS
     Dates: start: 20080830
  4. VANCOMYCIN HCL [Suspect]
     Dates: start: 20080830
  5. CORDARONE [Suspect]
  6. FLAGYL [Concomitant]
     Indication: SEPSIS
     Dates: start: 20080830
  7. FENTANYL-100 [Concomitant]
  8. LIQUAEMIN INJ [Concomitant]
  9. NORADRENALIN BICHSEL [Concomitant]
  10. DOBUTAMINE HCL [Concomitant]

REACTIONS (1)
  - CARDIAC ARREST [None]
